FAERS Safety Report 21327098 (Version 4)
Quarter: 2022Q4

REPORT INFORMATION
  Report Type: Other
  Country: IT (occurrence: IT)
  Receive Date: 20220913
  Receipt Date: 20221215
  Transmission Date: 20230112
  Serious: Yes (Hospitalization, Disabling, Other)
  Sender: FDA-Public Use
  Company Number: IT-ROCHE-3177329

PATIENT
  Age: 58 Year
  Sex: Male

DRUGS (10)
  1. CAPECITABINE [Suspect]
     Active Substance: CAPECITABINE
     Indication: Extramammary Paget^s disease
     Route: 065
  2. TRASTUZUMAB [Suspect]
     Active Substance: TRASTUZUMAB
     Indication: Extramammary Paget^s disease
     Dosage: LOADING DOSE
     Route: 042
  3. TRASTUZUMAB [Suspect]
     Active Substance: TRASTUZUMAB
     Dosage: MAINTENANCE DOSE
     Route: 042
  4. BICALUTAMIDE [Suspect]
     Active Substance: BICALUTAMIDE
     Indication: Extramammary Paget^s disease
     Route: 048
  5. GEMCITABINE [Suspect]
     Active Substance: GEMCITABINE
     Indication: Extramammary Paget^s disease
     Dosage: DAY 1, DAY 8
     Route: 065
  6. CARBOPLATIN [Concomitant]
     Active Substance: CARBOPLATIN
     Indication: Extramammary Paget^s disease
     Dosage: AREA UNDER THE CURVE (AUC) OF 5
     Dates: start: 201601, end: 201605
  7. PACLITAXEL [Concomitant]
     Active Substance: PACLITAXEL
     Indication: Extramammary Paget^s disease
     Dates: start: 201601
  8. VINORELBINE [Concomitant]
     Active Substance: VINORELBINE TARTRATE
     Indication: Extramammary Paget^s disease
     Dosage: AS GIVEN ON MONDAY, WEDNESDAY, AND FRIDAY EVERY WEEK
     Route: 048
  9. VINORELBINE [Concomitant]
     Active Substance: VINORELBINE TARTRATE
     Dosage: AS GIVEN ON MONDAY, WEDNESDAY, AND FRIDAY EVERY WEEK
     Route: 048
     Dates: start: 201901
  10. LEUPROLIDE ACETATE [Concomitant]
     Active Substance: LEUPROLIDE ACETATE
     Indication: Extramammary Paget^s disease
     Route: 030
     Dates: start: 201906

REACTIONS (8)
  - Disease progression [Unknown]
  - Mobility decreased [Unknown]
  - Febrile neutropenia [Unknown]
  - Anaemia [Unknown]
  - Asthenia [Unknown]
  - Fatigue [Unknown]
  - Depressed mood [Unknown]
  - Off label use [Unknown]

NARRATIVE: CASE EVENT DATE: 20151201
